FAERS Safety Report 5709960-X (Version None)
Quarter: 2008Q2

REPORT INFORMATION
  Report Type: 
  Country: None (occurrence: None)
  Receive Date: 20080418
  Receipt Date: 20070731
  Transmission Date: 20081010
  Serious: No
  Sender: FDA-Public Use
  Company Number: US-ASTRAZENECA-2007UW18353

PATIENT
  Age: 60 Year
  Sex: Male
  Weight: 89.8 kg

DRUGS (5)
  1. TOPROL-XL [Suspect]
     Route: 048
     Dates: start: 20060801
  2. NORVASC [Concomitant]
  3. CRESTOR [Concomitant]
     Route: 048
  4. AVALIDE [Concomitant]
  5. ZETIA [Concomitant]

REACTIONS (1)
  - HEART RATE IRREGULAR [None]
